FAERS Safety Report 5595733-8 (Version None)
Quarter: 2007Q4

REPORT INFORMATION
  Report Type: 
  Country: None (occurrence: None)
  Receive Date: 20071218
  Receipt Date: 20061106
  Transmission Date: 20080405
  Serious: Yes (Hospitalization)
  Sender: FDA-Public Use
  Company Number: 2006137254

PATIENT
  Age: 56 Year
  Sex: Female
  Weight: 62.1 kg

DRUGS (1)
  1. BEXTRA [Suspect]
     Indication: TENDONITIS
     Dosage: 10 MG (10 MG, 1 IN 1 D)
     Dates: start: 20020822

REACTIONS (2)
  - MYOCARDIAL INFARCTION [None]
  - SLEEP DISORDER [None]
